FAERS Safety Report 13245836 (Version 1)
Quarter: 2017Q1

REPORT INFORMATION
  Report Type: Spontaneous
  Country: US (occurrence: US)
  Receive Date: 20170217
  Receipt Date: 20170217
  Transmission Date: 20170428
  Serious: Yes (Death, Other)
  Sender: FDA-Public Use
  Company Number: US-SA-CAMP-1001595

PATIENT
  Age: 64 Year
  Sex: Male

DRUGS (30)
  1. CYCLOPHOSPHAMIDE. [Suspect]
     Active Substance: CYCLOPHOSPHAMIDE
     Indication: DIFFUSE LARGE B-CELL LYMPHOMA
     Dosage: 2X/W FOR 12 WEEKS
     Route: 065
  2. VINCRISTINE [Suspect]
     Active Substance: VINCRISTINE
     Indication: DIFFUSE LARGE B-CELL LYMPHOMA
     Dosage: CHOP REGIMEN, CYCLE 1
     Route: 065
  3. HYDROXYDOXORUBICIN [Suspect]
     Active Substance: DOXORUBICIN HYDROCHLORIDE
     Indication: DIFFUSE LARGE B-CELL LYMPHOMA
     Route: 065
  4. RITUXIMAB [Suspect]
     Active Substance: RITUXIMAB
     Indication: DIFFUSE LARGE B-CELL LYMPHOMA
     Dosage: 375 MG/M2, UNK, CYCLE 3 R-CHOP
     Route: 065
  5. VINCRISTINE [Suspect]
     Active Substance: VINCRISTINE
     Indication: DIFFUSE LARGE B-CELL LYMPHOMA
     Dosage: CHOP REGIMEN, CYCLE 1
     Route: 065
  6. VINCRISTINE [Suspect]
     Active Substance: VINCRISTINE
     Indication: DIFFUSE LARGE B-CELL LYMPHOMA
     Dosage: CHOP REGIMEN, CYCLE 1
     Route: 065
  7. HYDROXYDOXORUBICIN [Suspect]
     Active Substance: DOXORUBICIN HYDROCHLORIDE
     Indication: DIFFUSE LARGE B-CELL LYMPHOMA
     Route: 065
  8. CAMPATH [Suspect]
     Active Substance: ALEMTUZUMAB
     Indication: T-CELL PROLYMPHOCYTIC LEUKAEMIA
     Dosage: 10 MG, ONCE
     Route: 058
  9. PREDNISONE. [Suspect]
     Active Substance: PREDNISONE
     Indication: DIFFUSE LARGE B-CELL LYMPHOMA
     Dosage: CHOP REGIMEN, CYCLE 1
     Route: 065
  10. IFOSFAMIDE. [Suspect]
     Active Substance: IFOSFAMIDE
     Indication: DIFFUSE LARGE B-CELL LYMPHOMA
     Dosage: UNK, RICE REGIMEN CYCLE 1
     Route: 065
  11. VINCRISTINE [Suspect]
     Active Substance: VINCRISTINE
     Indication: DIFFUSE LARGE B-CELL LYMPHOMA
     Dosage: CHOP REGIMEN, CYCLE 1
     Route: 065
  12. CAMPATH [Suspect]
     Active Substance: ALEMTUZUMAB
     Indication: T-CELL PROLYMPHOCYTIC LEUKAEMIA
     Dosage: 30 MG, FOR 22 DOSES
     Route: 058
  13. PREDNISONE. [Suspect]
     Active Substance: PREDNISONE
     Indication: DIFFUSE LARGE B-CELL LYMPHOMA
     Dosage: CHOP REGIMEN, CYCLE 1
     Route: 065
  14. PREDNISONE. [Suspect]
     Active Substance: PREDNISONE
     Indication: DIFFUSE LARGE B-CELL LYMPHOMA
     Dosage: CHOP REGIMEN, CYCLE 1
     Route: 065
  15. ETOPOSIDE. [Suspect]
     Active Substance: ETOPOSIDE
     Indication: DIFFUSE LARGE B-CELL LYMPHOMA
     Dosage: UNK, RICE REGIMEN CYCLE 1
     Route: 065
  16. HYDROXYDOXORUBICIN [Suspect]
     Active Substance: DOXORUBICIN HYDROCHLORIDE
     Indication: DIFFUSE LARGE B-CELL LYMPHOMA
     Route: 065
  17. CAMPATH [Suspect]
     Active Substance: ALEMTUZUMAB
     Indication: T-CELL PROLYMPHOCYTIC LEUKAEMIA
     Dosage: 3 MG, ONCE
     Route: 058
  18. CYCLOPHOSPHAMIDE. [Suspect]
     Active Substance: CYCLOPHOSPHAMIDE
     Indication: DIFFUSE LARGE B-CELL LYMPHOMA
     Dosage: 2X/W FOR 12 WEEKS
     Route: 065
  19. CYCLOPHOSPHAMIDE. [Suspect]
     Active Substance: CYCLOPHOSPHAMIDE
     Indication: DIFFUSE LARGE B-CELL LYMPHOMA
     Dosage: 2X/W FOR 12 WEEKS
     Route: 065
  20. VINCRISTINE [Suspect]
     Active Substance: VINCRISTINE
     Indication: DIFFUSE LARGE B-CELL LYMPHOMA
     Dosage: CHOP REGIMEN, CYCLE 1
     Route: 065
  21. CARBOPLATIN. [Suspect]
     Active Substance: CARBOPLATIN
     Indication: DIFFUSE LARGE B-CELL LYMPHOMA
     Dosage: UNK, RICE REGIMEN CYCLE 1
     Route: 065
  22. PENTOSTATIN. [Concomitant]
     Active Substance: PENTOSTATIN
     Dosage: 2X/W, FOR 12 WEEKS
  23. CYCLOPHOSPHAMIDE. [Suspect]
     Active Substance: CYCLOPHOSPHAMIDE
     Indication: DIFFUSE LARGE B-CELL LYMPHOMA
     Dosage: 2X/W FOR 12 WEEKS
     Route: 065
  24. CYCLOPHOSPHAMIDE. [Suspect]
     Active Substance: CYCLOPHOSPHAMIDE
     Indication: DIFFUSE LARGE B-CELL LYMPHOMA
     Dosage: 2X/W FOR 12 WEEKS
     Route: 065
  25. PREDNISONE. [Suspect]
     Active Substance: PREDNISONE
     Indication: DIFFUSE LARGE B-CELL LYMPHOMA
     Dosage: CHOP REGIMEN, CYCLE 1
     Route: 065
  26. HYDROXYDOXORUBICIN [Suspect]
     Active Substance: DOXORUBICIN HYDROCHLORIDE
     Indication: DIFFUSE LARGE B-CELL LYMPHOMA
     Route: 065
  27. PREDNISONE. [Suspect]
     Active Substance: PREDNISONE
     Indication: DIFFUSE LARGE B-CELL LYMPHOMA
     Dosage: CHOP REGIMEN, CYCLE 1
     Route: 065
  28. HYDROXYDOXORUBICIN [Suspect]
     Active Substance: DOXORUBICIN HYDROCHLORIDE
     Indication: DIFFUSE LARGE B-CELL LYMPHOMA
     Route: 065
  29. RITUXIMAB [Suspect]
     Active Substance: RITUXIMAB
     Indication: DIFFUSE LARGE B-CELL LYMPHOMA
     Dosage: 375 MG/M2, UNK, CYCLE 4 R-CHOP
     Route: 065
  30. RITUXIMAB [Suspect]
     Active Substance: RITUXIMAB
     Indication: DIFFUSE LARGE B-CELL LYMPHOMA
     Dosage: UNK, RICE REGIMEN CYCLE 1
     Route: 065

REACTIONS (10)
  - Off label use [Unknown]
  - Sepsis [Fatal]
  - Cholecystitis acute [Unknown]
  - Drug ineffective [Unknown]
  - Lymphadenopathy [Recovering/Resolving]
  - Epstein-Barr virus associated lymphoma [Unknown]
  - Diffuse large B-cell lymphoma recurrent [Unknown]
  - Renal failure [Unknown]
  - Lung disorder [Unknown]
  - Supraventricular tachycardia [Unknown]
